FAERS Safety Report 23640754 (Version 1)
Quarter: 2024Q1

REPORT INFORMATION
  Report Type: Spontaneous
  Country: CN (occurrence: CN)
  Receive Date: 20240318
  Receipt Date: 20240318
  Transmission Date: 20240409
  Serious: Yes (Other)
  Sender: FDA-Public Use
  Company Number: None

PATIENT
  Age: 48 Year
  Sex: Male

DRUGS (1)
  1. XULTOPHY 100/3.6 [Suspect]
     Active Substance: INSULIN DEGLUDEC\LIRAGLUTIDE
     Indication: Blood glucose abnormal
     Dosage: 10 IU, QD(DURING THIS PERIOD, THE DOSE WAS ADJUSTED FOR MANY TIMES)
     Route: 058
     Dates: start: 20240107, end: 20240208

REACTIONS (2)
  - Drug-induced liver injury [Unknown]
  - Hepatic function abnormal [Recovering/Resolving]

NARRATIVE: CASE EVENT DATE: 20240224
